FAERS Safety Report 10162364 (Version 1)
Quarter: 2014Q2

REPORT INFORMATION
  Report Type: Spontaneous
  Country: US (occurrence: US)
  Receive Date: 20140509
  Receipt Date: 20140509
  Transmission Date: 20141212
  Serious: Yes (Other)
  Sender: FDA-Public Use
  Company Number: US-BAYER-2014-067565

PATIENT
  Age: 43 Year
  Sex: Female
  Weight: 77.1 kg

DRUGS (8)
  1. YAZ [Suspect]
  2. YASMIN [Suspect]
  3. OCELLA [Suspect]
  4. B12 [Concomitant]
     Indication: VITAMIN B12 DEFICIENCY
  5. B12 [Concomitant]
     Indication: PERNICIOUS ANAEMIA
  6. ADVAIR [Concomitant]
  7. PROVENTIL [Concomitant]
  8. ALEVE [Concomitant]

REACTIONS (1)
  - Deep vein thrombosis [Recovered/Resolved]
